FAERS Safety Report 6153522-X (Version None)
Quarter: 2009Q2

REPORT INFORMATION
  Report Type: 
  Country: None (occurrence: None)
  Receive Date: 20090413
  Receipt Date: 20090403
  Transmission Date: 20091009
  Serious: Yes (Hospitalization, Other)
  Sender: FDA-Public Use
  Company Number: PHHY2009GB11293

PATIENT
  Sex: Male

DRUGS (2)
  1. CLOZARIL [Suspect]
     Indication: SCHIZOPHRENIA
     Dosage: 325 MG, UNK
     Dates: start: 20050310
  2. CLOZARIL [Suspect]
     Dosage: 325 MG

REACTIONS (5)
  - CHEST PAIN [None]
  - CONFUSIONAL STATE [None]
  - CONJUNCTIVITIS [None]
  - OXYGEN SATURATION DECREASED [None]
  - PNEUMONIA [None]
